FAERS Safety Report 5201929-7 (Version None)
Quarter: 2007Q1

REPORT INFORMATION
  Report Type: 
  Country: None (occurrence: None)
  Receive Date: 20070104
  Receipt Date: 20061219
  Transmission Date: 20070707
  Serious: Yes (Death)
  Sender: FDA-Public Use
  Company Number: 149988ISR

PATIENT
  Age: 44 Year
  Sex: Female

DRUGS (12)
  1. FLUOROURACIL [Suspect]
     Indication: BREAST CANCER
     Dosage: INTRA CORPUS CAVERNOSUM
     Route: 011
     Dates: start: 20060807, end: 20060830
  2. CELECOXIB [Suspect]
     Indication: BREAST CANCER
     Dosage: (400 MG) ORAL
     Route: 048
     Dates: start: 20060801, end: 20060918
  3. EPIRUBICIN HYDROCHLORIDE [Suspect]
     Indication: BREAST CANCER
     Dosage: INTRAVENOUS
     Route: 042
     Dates: start: 20060807, end: 20060830
  4. CYCLOPHOSPHAMIDE [Suspect]
     Indication: BREAST CANCER
     Dosage: INTRAVENOUS
     Route: 042
     Dates: start: 20060807, end: 20060830
  5. OMEPRAZOLE [Concomitant]
  6. METOCLOPRAMIDE [Concomitant]
  7. THYMOL [Concomitant]
  8. ZOLPIDEM TARTRATE [Concomitant]
  9. MODURETIC 5-50 [Concomitant]
  10. AMOXI-CLAVULANICO [Concomitant]
  11. PARACETAMOL [Concomitant]
  12. CODEINE PHOSPHATE [Concomitant]

REACTIONS (7)
  - DIET REFUSAL [None]
  - DRUG TOXICITY [None]
  - HAEMOGLOBIN DECREASED [None]
  - PAIN IN EXTREMITY [None]
  - PNEUMONIA [None]
  - SEPSIS [None]
  - SOMNOLENCE [None]
